FAERS Safety Report 23635068 (Version 2)
Quarter: 2024Q1

REPORT INFORMATION
  Report Type: Spontaneous
  Country: JO (occurrence: JO)
  Receive Date: 20240315
  Receipt Date: 20240327
  Transmission Date: 20240410
  Serious: Yes (Death, Other)
  Sender: FDA-Public Use
  Company Number: JO-BoehringerIngelheim-2024-BI-014710

PATIENT
  Age: 88 Year
  Sex: Male

DRUGS (2)
  1. PRADAXA [Suspect]
     Active Substance: DABIGATRAN ETEXILATE MESYLATE
     Indication: Product used for unknown indication
     Dosage: THE PATIENT TOOK TWO CAPSULES OF PRADAXA 110 MG ON THE SAME TIME
  2. Sacubitril/Valsartan [Concomitant]
     Indication: Product used for unknown indication

REACTIONS (4)
  - Cardiac arrest [Fatal]
  - Upper gastrointestinal haemorrhage [Unknown]
  - Haematuria [Unknown]
  - Pneumonia [Unknown]
